FAERS Safety Report 16651344 (Version 2)
Quarter: 2019Q3

REPORT INFORMATION
  Report Type: Spontaneous
  Country: JP (occurrence: JP)
  Receive Date: 20190731
  Receipt Date: 20190819
  Transmission Date: 20191004
  Serious: Yes (Other)
  Sender: FDA-Public Use
  Company Number: JP-PFIZER INC-2019322908

PATIENT
  Age: 89 Year
  Sex: Male

DRUGS (7)
  1. OPALMON [Suspect]
     Active Substance: LIMAPROST
     Indication: SPINAL STENOSIS
     Dosage: 5 UG, 3X/DAY
     Route: 048
     Dates: start: 201301, end: 20190711
  2. LOXONIN [Concomitant]
     Active Substance: LOXOPROFEN SODIUM
     Dosage: UNK
  3. METHYCOBAL [Concomitant]
     Active Substance: METHYLCOBALAMIN
     Indication: SPINAL STENOSIS
     Dosage: 500 UG, 3X/DAY
     Route: 048
     Dates: start: 201301
  4. HIRUDOID [Concomitant]
     Active Substance: GLYCOSAMINOGLYCANS
     Dosage: UNK
  5. SUMILU [Concomitant]
     Active Substance: FELBINAC
     Dosage: UNK
  6. LYRICA [Suspect]
     Active Substance: PREGABALIN
     Indication: PAIN
     Dosage: 50 MG, 2X/DAY
     Route: 048
     Dates: start: 20190625, end: 20190627
  7. JUVELA [TOCOPHERYL ACETATE] [Suspect]
     Active Substance: .ALPHA.-TOCOPHEROL ACETATE
     Indication: SPINAL STENOSIS
     Dosage: 50 MG, 3X/DAY
     Route: 048
     Dates: start: 201301, end: 20190711

REACTIONS (2)
  - Retinal haemorrhage [Not Recovered/Not Resolved]
  - Eye haemorrhage [Not Recovered/Not Resolved]

NARRATIVE: CASE EVENT DATE: 20190627
